FAERS Safety Report 25344400 (Version 2)
Quarter: 2025Q2

REPORT INFORMATION
  Report Type: Spontaneous
  Country: CN (occurrence: CN)
  Receive Date: 20250521
  Receipt Date: 20250529
  Transmission Date: 20250716
  Serious: Yes (Death, Life-Threatening, Hospitalization)
  Sender: ALEXION PHARMACEUTICALS
  Company Number: CN-AstraZeneca-CH-00872384A

PATIENT
  Age: 71 Year

DRUGS (2)
  1. TAGRISSO [Suspect]
     Active Substance: OSIMERTINIB
     Route: 065
  2. TAGRISSO [Suspect]
     Active Substance: OSIMERTINIB
     Route: 065

REACTIONS (6)
  - Decreased appetite [Unknown]
  - Pneumonia [Unknown]
  - Death [Fatal]
  - Platelet count decreased [Unknown]
  - Pyrexia [Not Recovered/Not Resolved]
  - Discomfort [Unknown]
